FAERS Safety Report 24304163 (Version 1)
Quarter: 2024Q3

REPORT INFORMATION
  Report Type: Spontaneous
  Country: CA (occurrence: CA)
  Receive Date: 20240910
  Receipt Date: 20240910
  Transmission Date: 20241016
  Serious: Yes (Hospitalization, Disabling)
  Sender: MYLAN
  Company Number: CA-MYLANLABS-2024M1081880

PATIENT
  Age: 1 Day
  Sex: Male
  Weight: 3 kg

DRUGS (1)
  1. VENLAFAXINE [Suspect]
     Active Substance: VENLAFAXINE HYDROCHLORIDE
     Indication: Depression
     Dosage: 187.5 MILLIGRAM, QD (1 EVERY 1 DAYS)
     Route: 065

REACTIONS (7)
  - Encephalopathy [Recovered/Resolved]
  - Floppy infant [Recovered/Resolved]
  - Hypotonia [Recovered/Resolved]
  - Infantile apnoea [Recovered/Resolved]
  - Mechanical ventilation [Recovered/Resolved]
  - Poor feeding infant [Recovered/Resolved]
  - Somnolence [Recovered/Resolved]
